FAERS Safety Report 5297230-6 (Version None)
Quarter: 2007Q2

REPORT INFORMATION
  Report Type: 
  Country: None (occurrence: None)
  Receive Date: 20070416
  Receipt Date: 20070404
  Transmission Date: 20071010
  Serious: Yes (Other)
  Sender: FDA-Public Use
  Company Number: JP-JNJFOC-20051104824

PATIENT
  Sex: Female
  Weight: 60 kg

DRUGS (19)
  1. REMICADE [Suspect]
     Route: 042
  2. REMICADE [Suspect]
     Route: 042
  3. REMICADE [Suspect]
     Route: 042
  4. REMICADE [Suspect]
     Route: 042
  5. REMICADE [Suspect]
     Route: 042
  6. REMICADE [Suspect]
     Route: 042
  7. REMICADE [Suspect]
     Route: 042
  8. REMICADE [Suspect]
     Route: 042
  9. REMICADE [Suspect]
     Route: 042
  10. REMICADE [Suspect]
     Route: 042
  11. REMICADE [Suspect]
     Indication: RHEUMATOID ARTHRITIS
     Route: 042
  12. RHEUMATREX [Suspect]
     Route: 048
  13. RHEUMATREX [Suspect]
     Indication: RHEUMATOID ARTHRITIS
     Route: 048
  14. PREDONINE [Suspect]
     Route: 048
  15. PREDONINE [Suspect]
     Indication: RHEUMATOID ARTHRITIS
     Route: 048
  16. AZULFIDINE [Suspect]
     Indication: RHEUMATOID ARTHRITIS
     Route: 048
  17. ACTONEL [Concomitant]
     Route: 048
  18. TAGAMET [Concomitant]
     Route: 048
  19. FOLIAMIN [Concomitant]

REACTIONS (1)
  - PULMONARY TUBERCULOSIS [None]
